FAERS Safety Report 6310796-X (Version None)
Quarter: 2009Q3

REPORT INFORMATION
  Report Type: 
  Country: None (occurrence: None)
  Receive Date: 20090812
  Receipt Date: 20090729
  Transmission Date: 20100115
  Serious: No
  Sender: FDA-Public Use
  Company Number: C-09-0179

PATIENT
  Age: 7 Year
  Sex: Female
  Weight: 28.123 kg

DRUGS (1)
  1. LINDANE [Suspect]
     Indication: LICE INFESTATION
     Dosage: 60ML  APPLIED ONCE (060)
     Dates: start: 20090717

REACTIONS (4)
  - LICE INFESTATION [None]
  - PATHOGEN RESISTANCE [None]
  - PRODUCT MEASURED POTENCY ISSUE [None]
  - TREATMENT FAILURE [None]
